FAERS Safety Report 9230768 (Version 1)
Quarter: 2013Q2

REPORT INFORMATION
  Report Type: Spontaneous
  Country: DK (occurrence: GB)
  Receive Date: 20130415
  Receipt Date: 20130415
  Transmission Date: 20140414
  Serious: Yes (Other)
  Sender: FDA-Public Use
  Company Number: GB-FRI-1000044217

PATIENT
  Age: 54 Year
  Sex: Female

DRUGS (13)
  1. CITALOPRAM [Suspect]
     Indication: DEPRESSION
     Route: 048
  2. EVOREL SEQUI [Suspect]
     Indication: HORMONE REPLACEMENT THERAPY
     Route: 062
     Dates: start: 201202, end: 201204
  3. EVOREL SEQUI [Suspect]
     Indication: MENOPAUSAL SYMPTOMS
     Route: 062
     Dates: start: 2012, end: 20120820
  4. EVOREL SEQUI [Suspect]
     Route: 062
     Dates: start: 20120321, end: 20120716
  5. FEMOSTON [Suspect]
     Indication: HORMONE REPLACEMENT THERAPY
     Dosage: 1 MG
     Route: 048
     Dates: start: 2012, end: 20120820
  6. KLIOFEM [Suspect]
     Indication: HORMONE REPLACEMENT THERAPY
     Dates: start: 201204, end: 20120515
  7. KLIOFEM [Suspect]
     Indication: MENOPAUSE
  8. SERTRALINE [Suspect]
     Indication: ANXIETY
     Dosage: 50 MG
     Dates: start: 20120315, end: 20120413
  9. SERTRALINE [Suspect]
     Indication: DEPRESSION
  10. AMITRIPTYLINE [Concomitant]
     Indication: PAIN
     Dates: start: 20120628, end: 20121010
  11. MIRTAZAPINE [Concomitant]
     Indication: ANXIETY
     Dates: start: 20120731, end: 20121008
  12. MIRTAZAPINE [Concomitant]
     Indication: DEPRESSION
  13. ZOPICLONE [Concomitant]
     Indication: INSOMNIA
     Dates: start: 20120330

REACTIONS (14)
  - Oral pain [Not Recovered/Not Resolved]
  - Toothache [Not Recovered/Not Resolved]
  - Hypoaesthesia oral [Recovering/Resolving]
  - Pain of skin [Not Recovered/Not Resolved]
  - Headache [Recovering/Resolving]
  - Pruritus [Not Recovered/Not Resolved]
  - Hypersensitivity [Recovering/Resolving]
  - Anxiety [Recovering/Resolving]
  - Vomiting [Recovering/Resolving]
  - Otorrhoea [Recovering/Resolving]
  - Hearing impaired [Recovering/Resolving]
  - Nerve injury [Recovering/Resolving]
  - Neuralgia [Recovering/Resolving]
  - Pain [Recovering/Resolving]
